FAERS Safety Report 8156020-7 (Version None)
Quarter: 2012Q1

REPORT INFORMATION
  Report Type: 
  Country: None (occurrence: None)
  Receive Date: 20120216
  Receipt Date: 20120131
  Transmission Date: 20120608
  Serious: Yes (Other)
  Sender: FDA-Public Use
  Company Number: 2012-000542

PATIENT
  Age: 72 Year
  Sex: Male

DRUGS (17)
  1. FLUDROCORTISONE ACETATE [Concomitant]
  2. RIVASTIGMINE TARTRATE [Concomitant]
  3. AMANTADINE HCL [Concomitant]
  4. LACTULOSE [Concomitant]
  5. QUETIAPINE FUMARATE [Concomitant]
  6. TOLCAPONE (TOLCAPONE) [Concomitant]
  7. DOMPERIDONE (DOMPERIDONE) [Concomitant]
  8. ALL OTHER THERAPEUTIC PRODUCTS [Concomitant]
  9. RASAGILINE [Concomitant]
  10. ENTACAPONE [Concomitant]
  11. CLONAZEPAM [Concomitant]
  12. BENSERAZIDE (BENSERAZIDE) [Concomitant]
  13. SERTRALINE HYDROCHLORIDE [Concomitant]
  14. RASAGILINE [Concomitant]
  15. ENABLEX [Suspect]
     Dosage: 7.5 MG DAILY (EVENING DOSE), ORAL
     Route: 048
  16. RASAGILINE [Concomitant]
  17. BENSERAZIDE HYDROCHLORIDE W/LEVODOPA (BENSERAZIDE HYDROCHLORIDE, LEVOD [Concomitant]

REACTIONS (9)
  - ACTIVITIES OF DAILY LIVING IMPAIRED [None]
  - NAUSEA [None]
  - COGNITIVE DISORDER [None]
  - VOMITING [None]
  - CONDITION AGGRAVATED [None]
  - TREMOR [None]
  - APATHY [None]
  - QUALITY OF LIFE DECREASED [None]
  - CONFUSIONAL STATE [None]
